FAERS Safety Report 7021391-1 (Version None)
Quarter: 2010Q3

REPORT INFORMATION
  Report Type: 
  Country: None (occurrence: None)
  Receive Date: 20100929
  Receipt Date: 20100917
  Transmission Date: 20110219
  Serious: Yes (Hospitalization, Other)
  Sender: FDA-Public Use
  Company Number: AU-ELI_LILLY_AND_COMPANY-AU201009004277

PATIENT
  Sex: Female

DRUGS (1)
  1. FORTEO [Suspect]
     Indication: OSTEOPOROSIS
     Dosage: UNK, DAILY (1/D)
     Dates: start: 20100520

REACTIONS (6)
  - BLOOD POTASSIUM DECREASED [None]
  - HEAD INJURY [None]
  - PNEUMONIA [None]
  - RASH [None]
  - RIB FRACTURE [None]
  - SYNCOPE [None]
